FAERS Safety Report 13934717 (Version 1)
Quarter: 2017Q3

REPORT INFORMATION
  Report Type: Report from Study
  Country: US (occurrence: US)
  Receive Date: 20170905
  Receipt Date: 20170905
  Transmission Date: 20171127
  Serious: No
  Sender: FDA-Public Use
  Company Number: PHEH2017US027820

PATIENT
  Sex: Male

DRUGS (1)
  1. ENTRESTO [Suspect]
     Active Substance: SACUBITRIL\VALSARTAN
     Indication: PRODUCT USED FOR UNKNOWN INDICATION
     Dosage: 1 DF, UNK (24 MG OF SACUBITRIL AND 26 MG OF VALSARTAN)
     Route: 065

REACTIONS (3)
  - Abdominal pain lower [Unknown]
  - Decreased appetite [Unknown]
  - Nausea [Unknown]
